FAERS Safety Report 4282135-X (Version None)
Quarter: 2004Q1

REPORT INFORMATION
  Report Type: 
  Country: None (occurrence: None)
  Receive Date: 20040130
  Receipt Date: 20031118
  Transmission Date: 20041129
  Serious: No
  Sender: FDA-Public Use
  Company Number: US-BRISTOL-MYERS SQUIBB COMPANY-12438230

PATIENT
  Age: 15 Year
  Sex: Male

DRUGS (3)
  1. DESYREL [Suspect]
     Indication: SLEEP DISORDER
     Route: 048
  2. LEXAPRO [Concomitant]
  3. WELLBUTRIN SR [Concomitant]
     Dosage: IN MORNING

REACTIONS (1)
  - ALANINE AMINOTRANSFERASE INCREASED [None]
